FAERS Safety Report 8120267 (Version 3)
Quarter: 2013Q3

REPORT INFORMATION
  Report Type: Spontaneous
  Country: BR (occurrence: BR)
  Receive Date: 20110905
  Receipt Date: 20130826
  Transmission Date: 20140515
  Serious: Yes (Hospitalization, Other)
  Sender: FDA-Public Use
  Company Number: PHHY2011BR75427

PATIENT
  Age: 67 Year
  Sex: Female
  Weight: 70 kg

DRUGS (20)
  1. ACLASTA [Suspect]
     Indication: OSTEOPOROSIS
     Dosage: 5 MG/100 ML ANNUALLY
     Route: 042
     Dates: start: 201008
  2. ACLASTA [Suspect]
     Indication: OSTEOPENIA
     Dosage: 5 MG/100 ML ANNUALLY
     Route: 042
     Dates: start: 201210
  3. OMEPRAZOLE [Suspect]
     Indication: GASTRIC DISORDER
     Dosage: 2 DF, DAILY
     Route: 048
     Dates: start: 2007
  4. GLICAMIN [Concomitant]
     Indication: DIABETES MELLITUS
     Dosage: 5 MG, BID, 2 TABLETS AT ONCE, TWICE DAILY ON MORNING AND AFTERNOON
     Route: 048
     Dates: start: 1992
  5. LUFTAL [Concomitant]
     Indication: VOMITING
     Dosage: 24 DRP, DAILY
     Route: 048
     Dates: start: 2007
  6. LUFTAL [Concomitant]
     Indication: NAUSEA
  7. CLONAZEPAM [Concomitant]
     Indication: INSOMNIA
     Dosage: 5 MG, DAILY
     Route: 048
     Dates: start: 200704
  8. PAROXETINE [Concomitant]
     Indication: DEPRESSION
     Dosage: 20 MG, 2 TABLETS DAILY, ORAL
     Route: 048
     Dates: start: 200704
  9. PAROXETINE [Concomitant]
     Indication: NERVOUSNESS
  10. PROMETHAZINE [Concomitant]
     Dosage: 1 TABLET WHEN WAS LIE DOWN
     Route: 048
     Dates: start: 2008
  11. DOMPERIDONE [Concomitant]
     Indication: DYSPEPSIA
     Dosage: 10 MG, 1 TABLET EVERY 8 HOURS
     Route: 048
     Dates: start: 200704
  12. SERTRALINE HYDROCHLORIDE [Concomitant]
     Indication: NERVOUSNESS
     Dosage: 50 MG, 2 TABLETS DAILY
     Dates: start: 200704
  13. DEPAKENE [Concomitant]
     Indication: INSOMNIA
     Dosage: 500 MG, DAILY
  14. GLIFAGE [Concomitant]
     Indication: DIABETES MELLITUS
     Dosage: 2 DF, DAILY
     Route: 048
  15. MEFORMIN [Concomitant]
     Indication: DIABETES MELLITUS
     Dosage: 2 DF, DAILY
     Route: 048
  16. DAONIL [Concomitant]
     Indication: DIABETES MELLITUS
     Dosage: 2 DF, DAILY
  17. GLICLAZIDE [Concomitant]
     Indication: DIABETES MELLITUS
     Dosage: 2 DF, DAILY
  18. BUSCOPAN [Concomitant]
     Indication: VOMITING
     Dosage: 40 DRP, DAILY
     Route: 048
     Dates: start: 2007
  19. BUSCOPAN [Concomitant]
     Indication: NAUSEA
  20. SIMETHICONE [Concomitant]
     Indication: FLATULENCE
     Dosage: 240 DROPS FRACTIONAL A DAY
     Dates: start: 200704

REACTIONS (11)
  - Hiatus hernia [Unknown]
  - Oesophageal pain [Not Recovered/Not Resolved]
  - Gait disturbance [Not Recovered/Not Resolved]
  - Foot fracture [Recovered/Resolved]
  - Wrist fracture [Recovering/Resolving]
  - Pain [Not Recovered/Not Resolved]
  - Thyroid disorder [Not Recovered/Not Resolved]
  - Weight increased [Not Recovered/Not Resolved]
  - Insomnia [Not Recovered/Not Resolved]
  - Bone pain [Recovered/Resolved]
  - Headache [Recovered/Resolved]
